FAERS Safety Report 4367330-3 (Version None)
Quarter: 2004Q2

REPORT INFORMATION
  Report Type: 
  Country: None (occurrence: None)
  Receive Date: 20040528
  Receipt Date: 20040528
  Transmission Date: 20050107
  Serious: Yes (Hospitalization)
  Sender: FDA-Public Use
  Company Number: None

PATIENT
  Age: 57 Year
  Sex: Male

DRUGS (6)
  1. CYCLOPHOSPHAMIDE [Suspect]
     Indication: GLIOBLASTOMA MULTIFORME
     Dosage: 100 MG QD PO X 21 D (ALTERNATE W/ ETOPOSIDE)
     Route: 048
     Dates: start: 20040410, end: 20040524
  2. ETOPOSIDE [Suspect]
     Dosage: 50 MG QD PO X 21D (ALTERNATE W/ CYTOXAN)
     Route: 048
     Dates: start: 20040320, end: 20040521
  3. ZOLOFT [Concomitant]
  4. PREDNISONE [Concomitant]
  5. THALIDOMIDE [Concomitant]
  6. CELEBREX [Concomitant]

REACTIONS (2)
  - FATIGUE [None]
  - PULMONARY EMBOLISM [None]
